FAERS Safety Report 9147884 (Version 1)
Quarter: 2013Q1

REPORT INFORMATION
  Report Type: Spontaneous
  Country: CN (occurrence: CN)
  Receive Date: 20130307
  Receipt Date: 20130307
  Transmission Date: 20140127
  Serious: Yes (Other)
  Sender: FDA-Public Use
  Company Number: PHHY2011CN67470

PATIENT
  Age: 42 Year
  Sex: Female

DRUGS (2)
  1. DIOVAN [Suspect]
     Indication: HYPERTENSION
     Dosage: 80 MG, DAILY
  2. DIOVAN [Suspect]
     Dosage: 80 MG EVERY TWO DAYS
     Route: 048

REACTIONS (2)
  - Blood pressure fluctuation [Unknown]
  - Hypotension [Recovering/Resolving]
